FAERS Safety Report 8413052-9 (Version None)
Quarter: 2012Q2

REPORT INFORMATION
  Report Type: 
  Country: None (occurrence: None)
  Receive Date: 20120605
  Receipt Date: 20120530
  Transmission Date: 20120825
  Serious: No
  Sender: FDA-Public Use
  Company Number: US-AMGEN-USASP2012033766

PATIENT
  Age: 71 Year
  Sex: Female

DRUGS (2)
  1. TREXALL [Concomitant]
     Dosage: 6 MG, UNK
     Dates: start: 20100101
  2. ENBREL [Suspect]
     Indication: PSORIATIC ARTHROPATHY
     Dosage: 50 MG, QWK
     Dates: start: 20120501

REACTIONS (2)
  - PSORIATIC ARTHROPATHY [None]
  - MUSCULAR WEAKNESS [None]
